FAERS Safety Report 20657293 (Version 7)
Quarter: 2022Q4

REPORT INFORMATION
  Report Type: Report from Study
  Country: BR (occurrence: BR)
  Receive Date: 20220331
  Receipt Date: 20221022
  Transmission Date: 20230112
  Serious: Yes (Hospitalization, Other)
  Sender: FDA-Public Use
  Company Number: BR-NOVARTISPH-NVSC2022BR070652

PATIENT
  Sex: Female
  Weight: 52 kg

DRUGS (6)
  1. ENTRESTO [Suspect]
     Active Substance: SACUBITRIL\VALSARTAN
     Indication: Hypertension
     Dosage: 1 DOSAGE FORM (24/26 MG) 12 IN 12 HOURS
     Route: 048
     Dates: start: 2020
  2. ENTRESTO [Suspect]
     Active Substance: SACUBITRIL\VALSARTAN
     Dosage: 1 DOSAGE FORM, Q12H (24/26 MG) (28 TABLETS)
     Route: 065
  3. ATORVASTATIN [Concomitant]
     Active Substance: ATORVASTATIN
     Indication: Product used for unknown indication
     Dosage: UNK (AFTER DINNER)
     Route: 065
  4. ASPIRIN [Concomitant]
     Active Substance: ASPIRIN
     Indication: Product used for unknown indication
     Dosage: UNK (AFTER LUNCH)
     Route: 065
  5. BENSERAZIDE\LEVODOPA [Concomitant]
     Active Substance: BENSERAZIDE\LEVODOPA
     Indication: Product used for unknown indication
     Dosage: 0.75 DOSAGE FORM, QID (3/4 TH OF THE TABLET)
     Route: 065
  6. TOPIRAMATE [Concomitant]
     Active Substance: TOPIRAMATE
     Indication: Product used for unknown indication
     Dosage: 25 MG (12/12 HOURS)
     Route: 065

REACTIONS (21)
  - Cerebrovascular accident [Recovering/Resolving]
  - Parkinson^s disease [Unknown]
  - Hemiplegia [Recovering/Resolving]
  - Tremor [Not Recovered/Not Resolved]
  - Depression [Not Recovered/Not Resolved]
  - Blood pressure abnormal [Unknown]
  - Hypoaesthesia [Unknown]
  - Repetitive speech [Not Recovered/Not Resolved]
  - Muscular weakness [Recovering/Resolving]
  - Sensory loss [Recovering/Resolving]
  - Peripheral swelling [Recovered/Resolved]
  - Wound [Recovered/Resolved]
  - Gait disturbance [Recovering/Resolving]
  - Feeling abnormal [Unknown]
  - Asthenia [Unknown]
  - Sensitivity to weather change [Unknown]
  - Cough [Not Recovered/Not Resolved]
  - Head discomfort [Unknown]
  - Drug ineffective [Unknown]
  - Inappropriate schedule of product administration [Unknown]
  - Product use in unapproved indication [Unknown]

NARRATIVE: CASE EVENT DATE: 20200101
